FAERS Safety Report 4434407-3 (Version None)
Quarter: 2004Q3

REPORT INFORMATION
  Report Type: 
  Country: None (occurrence: None)
  Receive Date: 20040726
  Receipt Date: 20040406
  Transmission Date: 20050211
  Serious: No
  Sender: FDA-Public Use
  Company Number: USA040464255

PATIENT
  Age: 54 Year
  Sex: Female

DRUGS (3)
  1. FORTEO [Suspect]
  2. IBUPROFEN [Concomitant]
  3. ASPIRIN [Concomitant]

REACTIONS (2)
  - INJECTION SITE HAEMORRHAGE [None]
  - INJECTION SITE PAIN [None]
